FAERS Safety Report 7692889-8 (Version None)
Quarter: 2011Q3

REPORT INFORMATION
  Report Type: 
  Country: None (occurrence: None)
  Receive Date: 20110819
  Receipt Date: 20110804
  Transmission Date: 20111222
  Serious: No
  Sender: FDA-Public Use
  Company Number: US-B.I. PHARMACEUTICALS,INC./RIDGEFIELD-2011-BP-10446BP

PATIENT
  Age: 76 Year
  Sex: Female

DRUGS (7)
  1. NEOPOLY/HC OTIC [Concomitant]
  2. SOTALOL HCL [Concomitant]
     Indication: HYPERTENSION
     Route: 048
  3. HYDROCHLOROTHIAZIDE [Concomitant]
     Indication: HYPERTENSION
     Route: 048
  4. METOLAZONE [Concomitant]
  5. GLIPIZIDE [Concomitant]
     Indication: DIABETES MELLITUS
     Route: 048
  6. PRADAXA [Suspect]
     Indication: ATRIAL FIBRILLATION
  7. PRADAXA [Suspect]
     Indication: HEART RATE IRREGULAR
     Dosage: 300 MG
     Route: 048
     Dates: start: 20110301

REACTIONS (16)
  - PRURITUS [None]
  - DIZZINESS [None]
  - SKIN LESION [None]
  - HEADACHE [None]
  - URTICARIA [None]
  - BLOOD GLUCOSE INCREASED [None]
  - CONTUSION [None]
  - INSOMNIA [None]
  - RECTAL HAEMORRHAGE [None]
  - THROAT IRRITATION [None]
  - RASH [None]
  - ASTHENIA [None]
  - DYSPEPSIA [None]
  - PRURITUS GENERALISED [None]
  - HYPERTENSION [None]
  - HAEMORRHOIDS [None]
